FAERS Safety Report 14636041 (Version 1)
Quarter: 2018Q1

REPORT INFORMATION
  Report Type: Report from Study
  Country: US (occurrence: US)
  Receive Date: 20180314
  Receipt Date: 20180314
  Transmission Date: 20180509
  Serious: Yes (Other)
  Sender: FDA-Public Use
  Company Number: US-ACTELION-A-NJ2016-130299

PATIENT
  Age: 79 Year
  Sex: Female

DRUGS (13)
  1. LEVOTHYROXINE. [Concomitant]
     Active Substance: LEVOTHYROXINE
  2. ACIPHEX [Concomitant]
     Active Substance: RABEPRAZOLE SODIUM
  3. LASIX [Concomitant]
     Active Substance: FUROSEMIDE
  4. SILDENAFIL. [Concomitant]
     Active Substance: SILDENAFIL
     Indication: PULMONARY ARTERIAL HYPERTENSION
  5. TRACLEER [Suspect]
     Active Substance: BOSENTAN
     Indication: PULMONARY ARTERIAL HYPERTENSION
     Dosage: 125 MG, BID
     Route: 048
     Dates: start: 20151112
  6. PREDNISONE. [Concomitant]
     Active Substance: PREDNISONE
  7. TRESIBA [Concomitant]
     Active Substance: INSULIN DEGLUDEC
  8. CARVEDILOL. [Concomitant]
     Active Substance: CARVEDILOL
  9. ASPIRIN. [Concomitant]
     Active Substance: ASPIRIN
  10. TYVASO [Concomitant]
     Active Substance: TREPROSTINIL
  11. ATORVASTATIN [Concomitant]
     Active Substance: ATORVASTATIN
  12. METOLAZONE. [Concomitant]
     Active Substance: METOLAZONE
  13. HYDRALAZINE [Concomitant]
     Active Substance: HYDRALAZINE HYDROCHLORIDE

REACTIONS (5)
  - Hypoacusis [Recovered/Resolved]
  - Hyperacusis [Recovered/Resolved]
  - Ear discomfort [Recovered/Resolved]
  - Deafness [Not Recovered/Not Resolved]
  - Gout [Unknown]

NARRATIVE: CASE EVENT DATE: 20151112
